FAERS Safety Report 9630999 (Version 2)
Quarter: 2013Q4

REPORT INFORMATION
  Report Type: Spontaneous
  Country: US (occurrence: None)
  Receive Date: 20131015
  Receipt Date: 20131017
  Transmission Date: 20140711
  Serious: Yes (Other)
  Sender: FDA-Public Use
  Company Number: AUR-APL-2013-08394

PATIENT
  Age: 30 Year
  Sex: Male

DRUGS (6)
  1. QUETIAPINE [Suspect]
     Indication: SCHIZOPHRENIA
  2. ASENAPINE [Suspect]
     Indication: THINKING ABNORMAL
     Dosage: 10 MG (5 MG, 2 IN 1 D)
     Route: 060
  3. ARIPIPRAZOLE [Suspect]
     Indication: SCHIZOPHRENIA
  4. CLONAZEPAM [Suspect]
     Indication: SCHIZOPHRENIA
  5. BUSPIRONE [Suspect]
     Indication: SCHIZOPHRENIA
  6. LEXAPRO (ESCITALOPRAM OXALATE) [Suspect]
     Indication: SCHIZOPHRENIA

REACTIONS (4)
  - Restlessness [None]
  - Dysstasia [None]
  - Initial insomnia [None]
  - Akathisia [None]
